FAERS Safety Report 14462959 (Version 1)
Quarter: 2018Q1

REPORT INFORMATION
  Report Type: Spontaneous
  Country: US (occurrence: US)
  Receive Date: 20180130
  Receipt Date: 20180130
  Transmission Date: 20180509
  Serious: No
  Sender: FDA-Public Use
  Company Number: US-PFIZER INC-2018036474

PATIENT
  Age: 28 Year
  Sex: Female
  Weight: 49.9 kg

DRUGS (2)
  1. DEPO-MEDROL [Suspect]
     Active Substance: METHYLPREDNISOLONE ACETATE
     Indication: ALLERGY TEST
     Dosage: UNK
     Route: 023
     Dates: start: 201711, end: 201711
  2. KENALOG [Suspect]
     Active Substance: TRIAMCINOLONE ACETONIDE
     Indication: ALLERGY TEST
     Dosage: UNK
     Route: 023
     Dates: start: 201711, end: 201711

REACTIONS (3)
  - Injection site scar [Not Recovered/Not Resolved]
  - Injection site indentation [Not Recovered/Not Resolved]
  - Injection site discolouration [Not Recovered/Not Resolved]

NARRATIVE: CASE EVENT DATE: 201711
